FAERS Safety Report 7648416-4 (Version None)
Quarter: 2011Q3

REPORT INFORMATION
  Report Type: 
  Country: None (occurrence: None)
  Receive Date: 20110801
  Receipt Date: 20110726
  Transmission Date: 20111222
  Serious: Yes (Life-Threatening, Hospitalization, Other)
  Sender: FDA-Public Use
  Company Number: FR-ABBOTT-11P-056-0734153-00

PATIENT
  Sex: Female

DRUGS (3)
  1. JASMINE [Concomitant]
     Indication: PRODUCT USED FOR UNKNOWN INDICATION
  2. HUMIRA [Suspect]
     Dates: start: 20100901
  3. HUMIRA [Suspect]
     Indication: PSORIASIS
     Route: 058
     Dates: start: 20090101, end: 20110601

REACTIONS (20)
  - PLEUROPERICARDITIS [None]
  - PAINFUL RESPIRATION [None]
  - COUGH [None]
  - RESPIRATORY DISTRESS [None]
  - PSORIASIS [None]
  - ANTINUCLEAR ANTIBODY POSITIVE [None]
  - PULMONARY ARTERIAL HYPERTENSION [None]
  - RESPIRATORY DISORDER [None]
  - CARDIAC INDEX INCREASED [None]
  - RHEUMATOID FACTOR POSITIVE [None]
  - PERICARDIAL EFFUSION [None]
  - LUNG INFILTRATION [None]
  - PLEURAL DISORDER [None]
  - LUNG DISORDER [None]
  - DYSPNOEA [None]
  - PSEUDOMONAS INFECTION [None]
  - HYPOXIA [None]
  - CHEST PAIN [None]
  - PERICARDITIS [None]
  - PLEURISY [None]
